FAERS Safety Report 6089465-X (Version None)
Quarter: 2009Q1

REPORT INFORMATION
  Report Type: 
  Country: None (occurrence: None)
  Receive Date: 20090224
  Receipt Date: 20090212
  Transmission Date: 20090719
  Serious: Yes (Other)
  Sender: FDA-Public Use
  Company Number: US-PFIZER INC-2008062116

PATIENT
  Sex: Female
  Weight: 68 kg

DRUGS (15)
  1. CHANTIX [Suspect]
     Indication: SMOKING CESSATION THERAPY
     Route: 048
     Dates: start: 20080601, end: 20080711
  2. LIPITOR [Suspect]
  3. OXYCODONE [Concomitant]
  4. NORTRIPTYLINE [Concomitant]
  5. PREVACID [Concomitant]
  6. LORAZEPAM [Concomitant]
  7. OXYCONTIN [Concomitant]
  8. ALL OTHER THERAPEUTIC PRODUCTS [Concomitant]
  9. AMITRIPTYLINE [Concomitant]
  10. EFFEXOR [Concomitant]
  11. PERCOCET [Concomitant]
  12. VITAMIN B COMPLEX CAP [Concomitant]
  13. CALCIUM [Concomitant]
  14. VITAMINS [Concomitant]
  15. NEURONTIN [Concomitant]

REACTIONS (4)
  - AMNESIA [None]
  - BLOOD CHOLESTEROL INCREASED [None]
  - OROPHARYNGEAL PAIN [None]
  - PSYCHOTIC DISORDER [None]
